FAERS Safety Report 17484659 (Version 1)
Quarter: 2020Q1

REPORT INFORMATION
  Report Type: Spontaneous
  Country: US (occurrence: US)
  Receive Date: 20200302
  Receipt Date: 20200302
  Transmission Date: 20200409
  Serious: No
  Sender: FDA-Public Use
  Company Number: US-SHIRE-US202007274

PATIENT
  Age: 19 Year
  Sex: Male

DRUGS (1)
  1. ADVATE [Suspect]
     Active Substance: ANTIHEMOPHILIC FACTOR, HUMAN RECOMBINANT
     Indication: FACTOR VIII DEFICIENCY
     Dosage: 4 MILLILITER, IU, UNKNOWN
     Route: 042

REACTIONS (2)
  - Dehydration [Not Recovered/Not Resolved]
  - Blood urine present [Not Recovered/Not Resolved]
